FAERS Safety Report 12781167 (Version 1)
Quarter: 2016Q3

REPORT INFORMATION
  Report Type: Other
  Country: DE (occurrence: DE)
  Receive Date: 20160926
  Receipt Date: 20160926
  Transmission Date: 20161109
  Serious: Yes (Other)
  Sender: FDA-Public Use
  Company Number: DE-LABORATOIRE HRA PHARMA-1057710

PATIENT
  Sex: Female
  Weight: 58 kg

DRUGS (2)
  1. TAFLOTAN(TAFLUPROST) [Concomitant]
  2. ELLA [Suspect]
     Active Substance: ULIPRISTAL ACETATE
     Route: 048
     Dates: start: 20160730, end: 20160730

REACTIONS (3)
  - Abortion spontaneous [None]
  - Vaginal haemorrhage [None]
  - Unintended pregnancy [None]

NARRATIVE: CASE EVENT DATE: 20160901
